FAERS Safety Report 10558912 (Version 2)
Quarter: 2014Q4

REPORT INFORMATION
  Report Type: Report from Study
  Country: AR (occurrence: AR)
  Receive Date: 20141101
  Receipt Date: 20141117
  Transmission Date: 20150529
  Serious: Yes (Other)
  Sender: FDA-Public Use
  Company Number: PHHY2014AR142516

PATIENT
  Sex: Female

DRUGS (5)
  1. DIOVAN D [Suspect]
     Active Substance: HYDROCHLOROTHIAZIDE\VALSARTAN
     Indication: OFF LABEL USE
  2. DIOVAN [Suspect]
     Active Substance: VALSARTAN
     Indication: PRODUCT USED FOR UNKNOWN INDICATION
     Dosage: UNK (80 UNITS NOT REPORTED)
     Route: 065
  3. DIOVAN D [Suspect]
     Active Substance: HYDROCHLOROTHIAZIDE\VALSARTAN
     Indication: FLUID RETENTION
  4. DIOVAN D [Suspect]
     Active Substance: HYDROCHLOROTHIAZIDE\VALSARTAN
     Indication: HYPERTENSION
     Dosage: 1 DF (160/12.5), QD
     Route: 065
     Dates: start: 2011
  5. DIOVAN [Suspect]
     Active Substance: VALSARTAN
     Dosage: UNK (160 UNITS NOT REPORTED)
     Route: 065

REACTIONS (2)
  - Deafness [Recovered/Resolved]
  - Blood pressure decreased [Recovered/Resolved]

NARRATIVE: CASE EVENT DATE: 2011
